FAERS Safety Report 6920382-6 (Version None)
Quarter: 2010Q3

REPORT INFORMATION
  Report Type: 
  Country: None (occurrence: None)
  Receive Date: 20100804
  Receipt Date: 20100215
  Transmission Date: 20110219
  Serious: No
  Sender: FDA-Public Use
  Company Number: 2010-0553

PATIENT
  Age: 60 Year
  Sex: Male
  Weight: 136 kg

DRUGS (5)
  1. SOMATULINE DEPOT [Suspect]
     Indication: ACROMEGALY
     Dosage: (90 MG,ONCE), SUBCUTANEOUS
     Route: 058
     Dates: start: 20100213
  2. LASIX [Concomitant]
  3. POTASSIUM (POTASSIUM) [Concomitant]
  4. GLYBURIDE [Concomitant]
  5. METFORMIN HCL [Concomitant]

REACTIONS (4)
  - ABDOMINAL DISCOMFORT [None]
  - BLOOD GLUCOSE INCREASED [None]
  - INCREASED APPETITE [None]
  - WEIGHT DECREASED [None]
